FAERS Safety Report 22001932 (Version 1)
Quarter: 2023Q1

REPORT INFORMATION
  Report Type: Spontaneous
  Country: US (occurrence: US)
  Receive Date: 20230216
  Receipt Date: 20230216
  Transmission Date: 20230418
  Serious: Yes (Other)
  Sender: FDA-Public Use
  Company Number: US-JNJFOC-20230224470

PATIENT

DRUGS (3)
  1. REMICADE [Suspect]
     Active Substance: INFLIXIMAB
     Indication: Product used for unknown indication
     Route: 041
     Dates: start: 202007
  2. REMICADE [Suspect]
     Active Substance: INFLIXIMAB
     Dosage: 100 MG EACH 0F 22ED93481, 22ED93401 BOTH EXPIRING 4/30/2025
     Route: 041
  3. REMICADE [Suspect]
     Active Substance: INFLIXIMAB
     Dosage: THE FINAL 200 MG CAME FROM TWO VIALS CONTAINING THE THIRD LOT NUMBER, RECORDED AS 22D031P1 WHICH APP
     Route: 041

REACTIONS (2)
  - Generalised tonic-clonic seizure [Unknown]
  - Infusion related reaction [Unknown]
